FAERS Safety Report 16615961 (Version 2)
Quarter: 2019Q3

REPORT INFORMATION
  Report Type: Report from Study
  Country: GB (occurrence: GB)
  Receive Date: 20190723
  Receipt Date: 20190903
  Transmission Date: 20191004
  Serious: Yes (Other)
  Sender: FDA-Public Use
  Company Number: GB-MYLANLABS-2019M1068371

PATIENT
  Sex: Female

DRUGS (36)
  1. DOCETAXEL. [Suspect]
     Active Substance: DOCETAXEL
     Indication: HER-2 POSITIVE BREAST CANCER
     Dosage: 148 MILLIGRAM, Q3W
     Route: 042
     Dates: start: 20160304
  2. COCODAMOL [Concomitant]
     Active Substance: ACETAMINOPHEN\CODEINE PHOSPHATE
     Dosage: 120 MILLIGRAM, QD
     Route: 048
     Dates: end: 201603
  3. AMITRIPTYLINE HYDROCHLORIDE. [Concomitant]
     Active Substance: AMITRIPTYLINE HYDROCHLORIDE
     Indication: ACETABULUM FRACTURE
     Dosage: 10 MILLIGRAM
     Route: 048
     Dates: start: 20170522
  4. PARACETAMOL [Concomitant]
     Active Substance: ACETAMINOPHEN
     Dosage: 3 GRAM, QD
     Route: 048
     Dates: start: 20160316, end: 20160415
  5. IBUPROFEN. [Concomitant]
     Active Substance: IBUPROFEN
     Dosage: 1600 MILLIGRAM, QD
     Route: 048
  6. CALCICHEW D3 FORTE [Concomitant]
     Active Substance: CALCIUM\CHOLECALCIFEROL
     Dosage: 2 DOSAGE FORM, QD
     Route: 048
     Dates: start: 20160225
  7. LOPERAMIDE [Concomitant]
     Active Substance: LOPERAMIDE
     Dosage: 2 MILLIGRAM
     Route: 048
     Dates: start: 20160302
  8. TRASTUZUMAB. [Suspect]
     Active Substance: TRASTUZUMAB
     Dosage: 900 MG, SINGLE LOADING DOSE
     Route: 042
     Dates: start: 20160303
  9. COCODAMOL [Concomitant]
     Active Substance: ACETAMINOPHEN\CODEINE PHOSPHATE
     Dosage: 120 MILLIGRAM, QD
     Route: 048
     Dates: end: 2016
  10. PEGFILGRASTIM [Concomitant]
     Active Substance: PEGFILGRASTIM
     Dosage: 6 MILLIGRAM
     Route: 058
     Dates: start: 20160302
  11. CHLORHEXIDINE HYDROCHLORIDE W/NEOMYCIN SULFAT [Concomitant]
     Dosage: OINTMENT, CHLORHEXIDINE HYDROCHLORIDE 0.1% AND NEOMYCIN SULPHATE 0.5%
     Route: 061
     Dates: start: 20160324
  12. LIDOCAINE. [Concomitant]
     Active Substance: LIDOCAINE
     Dosage: 700 MILLIGRAM, QD
     Route: 062
     Dates: start: 20160307
  13. PERTUZUMAB. [Suspect]
     Active Substance: PERTUZUMAB
     Indication: BREAST CANCER METASTATIC
     Dosage: 420 MILLIGRAM, Q3W
     Route: 042
     Dates: start: 20160324
  14. DEXAMETHASONE. [Concomitant]
     Active Substance: DEXAMETHASONE
     Dosage: 16 MILLIGRAM, QD
     Route: 048
     Dates: start: 20160302
  15. MENTHOL                            /00482702/ [Concomitant]
     Dosage: 6 PERCENT, QD
     Route: 061
     Dates: start: 20160307
  16. TRASTUZUMAB. [Suspect]
     Active Substance: TRASTUZUMAB
     Indication: HER-2 POSITIVE BREAST CANCER
     Dosage: 900 MILLIGRAM, Q3W
     Route: 042
     Dates: start: 20160303
  17. PERTUZUMAB. [Suspect]
     Active Substance: PERTUZUMAB
     Indication: HER-2 POSITIVE BREAST CANCER
     Dosage: 840 MILLIGRAM, Q3W
     Route: 042
     Dates: start: 20160303
  18. PERTUZUMAB. [Suspect]
     Active Substance: PERTUZUMAB
     Dosage: 840 MILLIGRAM, TOTAL
     Route: 042
     Dates: start: 20160303
  19. APIXABAN [Concomitant]
     Active Substance: APIXABAN
     Indication: ACETABULUM FRACTURE
     Dosage: 5 MILLIGRAM, QD
     Route: 048
     Dates: start: 20170512
  20. OXYCODONE [Concomitant]
     Active Substance: OXYCODONE
     Dosage: 15 MILLIGRAM
     Route: 048
     Dates: start: 20170512
  21. PREGABALIN. [Concomitant]
     Active Substance: PREGABALIN
     Dosage: 150 MILLIGRAM, QD
     Route: 048
     Dates: start: 20160307
  22. METFORMIN [Concomitant]
     Active Substance: METFORMIN HYDROCHLORIDE
     Dosage: 850 MILLIGRAM
     Route: 048
  23. DENOSUMAB [Concomitant]
     Active Substance: DENOSUMAB
     Indication: BONE DISORDER
     Dosage: 120 MILLIGRAM, QMINUTE
     Route: 058
     Dates: start: 20160226
  24. LOSARTAN POTASSIUM. [Concomitant]
     Active Substance: LOSARTAN POTASSIUM
     Dosage: 50 MILLIGRAM, QD
     Route: 048
     Dates: start: 20160506
  25. DOMPERIDONE [Concomitant]
     Active Substance: DOMPERIDONE
     Dosage: 10 MILLIGRAM
     Route: 048
     Dates: start: 20160302
  26. PREGABALIN. [Concomitant]
     Active Substance: PREGABALIN
     Dosage: 450 MILLIGRAM, QD
     Route: 048
     Dates: start: 20170516
  27. ZOMORPH [Concomitant]
     Active Substance: MORPHINE SULFATE
     Dosage: 20 MILLIGRAM, QD
     Route: 048
     Dates: start: 20160311
  28. ORAMORPH [Concomitant]
     Active Substance: MORPHINE SULFATE
     Dosage: 10 MILLIGRAM
     Route: 048
  29. ANUSOL HC                          /00028604/ [Concomitant]
     Dosage: 3 UNK, QD
     Route: 061
     Dates: start: 20160324
  30. TRASTUZUMAB. [Suspect]
     Active Substance: TRASTUZUMAB
     Dosage: 675 MILLIGRAM, Q3W
     Route: 042
     Dates: start: 20160324
  31. OXYCODONE [Concomitant]
     Active Substance: OXYCODONE
     Dosage: 10 MILLIGRAM
     Route: 048
     Dates: start: 20170512
  32. PREGABALIN. [Concomitant]
     Active Substance: PREGABALIN
     Dosage: 150 MILLIGRAM, QD
     Route: 048
     Dates: start: 20160307, end: 20170516
  33. NAPROXEN. [Concomitant]
     Active Substance: NAPROXEN
     Dosage: 1500 MILLIGRAM, QD
     Route: 048
  34. DICLOFENAC SODIUM. [Concomitant]
     Active Substance: DICLOFENAC SODIUM
     Dosage: 1 PERCENT
     Route: 061
     Dates: start: 20161220
  35. LANSOPRAZOLE. [Concomitant]
     Active Substance: LANSOPRAZOLE
     Indication: PROPHYLAXIS
     Dosage: 30 MICROGRAM
     Route: 048
     Dates: start: 20160324
  36. CODEINE PHOSPHATE [Concomitant]
     Active Substance: CODEINE PHOSPHATE
     Dosage: 90 MILLIGRAM, QD
     Route: 048
     Dates: start: 20160912

REACTIONS (10)
  - Sciatica [Not Recovered/Not Resolved]
  - Localised infection [Not Recovered/Not Resolved]
  - Diarrhoea [Recovered/Resolved]
  - Neuropathy peripheral [Not Recovered/Not Resolved]
  - Hypokalaemia [Not Recovered/Not Resolved]
  - Dysuria [Recovered/Resolved]
  - Nail bed tenderness [Recovered/Resolved]
  - Fatigue [Recovered/Resolved]
  - Anaemia [Recovering/Resolving]
  - Skin discolouration [Not Recovered/Not Resolved]

NARRATIVE: CASE EVENT DATE: 20160315
